FAERS Safety Report 15356411 (Version 1)
Quarter: 2018Q3

REPORT INFORMATION
  Report Type: Spontaneous
  Country: US (occurrence: US)
  Receive Date: 20180906
  Receipt Date: 20180906
  Transmission Date: 20181010
  Serious: No
  Sender: FDA-Public Use
  Company Number: US-FERRINGPH-2017FE06045

PATIENT
  Age: 66 Year
  Sex: Male
  Weight: 74.38 kg

DRUGS (3)
  1. PREPOPIK [Suspect]
     Active Substance: ANHYDROUS CITRIC ACID\MAGNESIUM OXIDE\SODIUM PICOSULFATE
     Indication: BOWEL PREPARATION
     Dosage: 2 SACHETS
     Route: 048
     Dates: start: 20171204, end: 20171205
  2. MULTAQ [Concomitant]
     Active Substance: DRONEDARONE
     Indication: ARRHYTHMIA
     Dosage: 400 MG, 2 TIMES DAILY
     Route: 065
  3. ENALAPRIL [Concomitant]
     Active Substance: ENALAPRIL
     Indication: BLOOD PRESSURE MANAGEMENT
     Dosage: 2.5 MG, DAILY
     Route: 065

REACTIONS (1)
  - Drug effect incomplete [Unknown]

NARRATIVE: CASE EVENT DATE: 20171204
